FAERS Safety Report 5073573-6 (Version None)
Quarter: 2006Q3

REPORT INFORMATION
  Report Type: 
  Country: None (occurrence: None)
  Receive Date: 20060803
  Receipt Date: 20060724
  Transmission Date: 20061208
  Serious: Yes (Other)
  Sender: FDA-Public Use
  Company Number: HQ5425720NOV2002

PATIENT
  Age: 35 Year
  Sex: Male
  Weight: 96.25 kg

DRUGS (2)
  1. MYLOTARG [Suspect]
     Indication: ACUTE MYELOID LEUKAEMIA
     Dosage: SEE IMAGE
     Route: 042
     Dates: start: 20020215, end: 20020215
  2. MYLOTARG [Suspect]
     Indication: ACUTE MYELOID LEUKAEMIA
     Dosage: SEE IMAGE
     Route: 042
     Dates: start: 20020301, end: 20020301

REACTIONS (5)
  - INFUSION RELATED REACTION [None]
  - NAUSEA [None]
  - PANCYTOPENIA [None]
  - RENAL FAILURE [None]
  - VOMITING [None]
